FAERS Safety Report 12746679 (Version 3)
Quarter: 2016Q3

REPORT INFORMATION
  Report Type: Report from Study
  Country: NL (occurrence: NL)
  Receive Date: 20160915
  Receipt Date: 20160923
  Transmission Date: 20161109
  Serious: Yes (Death, Hospitalization, Other)
  Sender: FDA-Public Use
  Company Number: NL-ABBVIE-16K-114-1721402-00

PATIENT
  Sex: Male

DRUGS (2)
  1. DUODOPA [Suspect]
     Active Substance: CARBIDOPA\LEVODOPA
     Indication: PARKINSON^S DISEASE
     Dosage: MD 14, CD 4.5, ED 2.8
     Route: 050
     Dates: start: 20151019
  2. LEVODOPA [Concomitant]
     Active Substance: LEVODOPA
     Indication: PRODUCT USED FOR UNKNOWN INDICATION

REACTIONS (5)
  - Blood test abnormal [Not Recovered/Not Resolved]
  - Haemoglobin decreased [Fatal]
  - Delirium [Fatal]
  - Intestinal haemorrhage [Fatal]
  - Gastric haemorrhage [Fatal]
